FAERS Safety Report 22871279 (Version 3)
Quarter: 2023Q4

REPORT INFORMATION
  Report Type: Report from Study
  Country: US (occurrence: US)
  Receive Date: 20230828
  Receipt Date: 20231013
  Transmission Date: 20240109
  Serious: Yes (Other)
  Sender: FDA-Public Use
  Company Number: US-002147023-NVSC2023US185711

PATIENT
  Sex: Female

DRUGS (2)
  1. TEGRETOL XR [Suspect]
     Active Substance: CARBAMAZEPINE
     Indication: Seizure
     Dosage: UNK
     Route: 065
  2. CARBAMAZEPINE [Suspect]
     Active Substance: CARBAMAZEPINE
     Indication: Product used for unknown indication
     Dosage: UNK
     Route: 065

REACTIONS (3)
  - Seizure [Unknown]
  - Product use issue [Unknown]
  - Product availability issue [Unknown]
